FAERS Safety Report 21102531 (Version 5)
Quarter: 2023Q1

REPORT INFORMATION
  Report Type: Spontaneous
  Country: JP (occurrence: JP)
  Receive Date: 20220719
  Receipt Date: 20230113
  Transmission Date: 20230418
  Serious: Yes (Other)
  Sender: FDA-Public Use
  Company Number: JP-BRISTOL-MYERS SQUIBB COMPANY-2022-076095

PATIENT
  Age: 65 Year
  Sex: Male
  Weight: 66.2 kg

DRUGS (10)
  1. YERVOY [Suspect]
     Active Substance: IPILIMUMAB
     Indication: Lung adenocarcinoma
     Dosage: 57, NUMBER OF DOSES: 1.
     Route: 041
     Dates: start: 20220308, end: 20220308
  2. YERVOY [Suspect]
     Active Substance: IPILIMUMAB
     Dosage: 57, NUMBER OF DOSES: 2.
     Route: 041
     Dates: start: 20220419, end: 20220419
  3. YERVOY [Suspect]
     Active Substance: IPILIMUMAB
     Dosage: 57, NUMBER OF DOSES: 3.
     Route: 041
     Dates: start: 20220531, end: 20220531
  4. OPDIVO [Suspect]
     Active Substance: NIVOLUMAB
     Indication: Lung adenocarcinoma
     Dosage: 360, NUMBER OF DOSES: 1.
     Route: 041
     Dates: start: 20220308, end: 20220308
  5. OPDIVO [Suspect]
     Active Substance: NIVOLUMAB
     Dosage: 360, NUMBER OF DOSES: 2.
     Route: 041
     Dates: start: 20220329, end: 20220329
  6. OPDIVO [Suspect]
     Active Substance: NIVOLUMAB
     Dosage: 360, NUMBER OF DOSES: 3.
     Route: 041
     Dates: start: 20220419, end: 20220419
  7. OPDIVO [Suspect]
     Active Substance: NIVOLUMAB
     Dosage: 360, NUMBER OF DOSES: 4.
     Route: 041
     Dates: start: 20220531, end: 20220531
  8. OPDIVO [Suspect]
     Active Substance: NIVOLUMAB
     Dosage: 360, NUMBER OF DOSES: 5.
     Route: 041
     Dates: start: 20220602, end: 20220602
  9. PEMBROLIZUMAB [Suspect]
     Active Substance: PEMBROLIZUMAB
     Indication: Lung adenocarcinoma
  10. TENELIGLIPTIN [Suspect]
     Active Substance: TENELIGLIPTIN
     Indication: Product used for unknown indication

REACTIONS (8)
  - Hypothyroidism [Unknown]
  - Immune-mediated adrenal insufficiency [Recovered/Resolved]
  - Pemphigoid [Recovering/Resolving]
  - Dry skin [Recovering/Resolving]
  - Rash [Recovered/Resolved]
  - Pruritus [Recovered/Resolved]
  - Eosinophil count increased [Unknown]
  - C-reactive protein increased [Unknown]

NARRATIVE: CASE EVENT DATE: 20220419
